FAERS Safety Report 4442037-2 (Version None)
Quarter: 2004Q3

REPORT INFORMATION
  Report Type: 
  Country: None (occurrence: None)
  Receive Date: 20040901
  Receipt Date: 20040819
  Transmission Date: 20050211
  Serious: Yes (Hospitalization, Other)
  Sender: FDA-Public Use
  Company Number: 2004047682

PATIENT
  Age: 84 Year
  Sex: Female
  Weight: 66.6788 kg

DRUGS (10)
  1. ZITHROMAX [Suspect]
     Indication: PHARYNGOLARYNGEAL PAIN
     Dosage: 500 MG (1 IN 1 D), ORAL
     Route: 048
     Dates: start: 20040101, end: 20040101
  2. HYDROCHLOROTHIAZIDE [Concomitant]
  3. POTASSIUM CHLORIDE [Concomitant]
  4. METOPROLOL [Concomitant]
  5. MULTIVITAMIN [Concomitant]
  6. ALENDRONATE SODIUM [Concomitant]
  7. CALCIUM WITH VITAMIN D (CALCIUM PHOSPHATE, CALCIUM SODIUM LACTATE, ERG [Concomitant]
  8. ISOSORBIDE MONONITRATE [Concomitant]
  9. RESERPINE [Concomitant]
  10. SERETIDE MITE (FLUTICASONE PROPIONATE, SALMETEROL XINAFOATE) [Concomitant]

REACTIONS (5)
  - ABDOMINAL PAIN UPPER [None]
  - CHEST PAIN [None]
  - HYPERHIDROSIS [None]
  - NAUSEA [None]
  - VOMITING [None]
